FAERS Safety Report 8757575 (Version 1)
Quarter: 2012Q4

REPORT INFORMATION
  Report Type: 
  Country: US (occurrence: US)
  Receive Date: 20120903
  Receipt Date: 20120903
  Transmission Date: 20130627
  Serious: Yes (Other)
  Sender: FDA-Public Use
  Company Number: US-PFIZER INC-2012207872

PATIENT
  Age: 56 Year
  Sex: Female
  Weight: 100.23 kg

DRUGS (4)
  1. LYRICA [Suspect]
     Indication: FIBROMYALGIA
     Dosage: 75 mg, 2x/day
     Route: 048
  2. FLEXERIL [Suspect]
     Dosage: UNK
  3. EFFEXOR-XR [Concomitant]
     Dosage: UNK
  4. KEPPRA [Concomitant]
     Dosage: 1000 mg, 3x/day

REACTIONS (15)
  - Road traffic accident [Unknown]
  - Oral disorder [Unknown]
  - Screaming [Unknown]
  - Eye disorder [Unknown]
  - Tongue disorder [Unknown]
  - Somnolence [Unknown]
  - Feeling abnormal [Unknown]
  - Aggression [Unknown]
  - Photosensitivity reaction [Unknown]
  - Musculoskeletal stiffness [Unknown]
  - Pain [Unknown]
  - Drug ineffective [Unknown]
  - Malaise [Unknown]
  - Drug hypersensitivity [Unknown]
  - Eye disorder [Unknown]
